FAERS Safety Report 25868555 (Version 2)
Quarter: 2025Q4

REPORT INFORMATION
  Report Type: Spontaneous
  Country: IN (occurrence: IN)
  Receive Date: 20251001
  Receipt Date: 20251006
  Transmission Date: 20260118
  Serious: Yes (Death, Life-Threatening, Hospitalization)
  Sender: MACLEODS
  Company Number: IN-MACLEODS PHARMA-MAC2025055472

PATIENT

DRUGS (4)
  1. ATORVASTATIN [Suspect]
     Active Substance: ATORVASTATIN
     Indication: Coronary artery disease
     Dosage: HIGH DOSE
     Route: 065
  2. TICAGRELOR [Concomitant]
     Active Substance: TICAGRELOR
     Indication: Coronary artery disease
     Route: 065
  3. ASPIRIN [Concomitant]
     Active Substance: ASPIRIN
     Indication: Coronary artery disease
     Route: 065
  4. METOPROLOL [Concomitant]
     Active Substance: METOPROLOL
     Indication: Coronary artery disease
     Route: 065

REACTIONS (6)
  - Cardiac arrest [Fatal]
  - Acute kidney injury [Fatal]
  - Shock [Fatal]
  - Cholecystitis chronic [Fatal]
  - Hypotension [Fatal]
  - Rhabdomyolysis [Fatal]
